FAERS Safety Report 4337266-2 (Version None)
Quarter: 2004Q2

REPORT INFORMATION
  Report Type: 
  Country: None (occurrence: None)
  Receive Date: 20040413
  Receipt Date: 20040303
  Transmission Date: 20050107
  Serious: Yes (Life-Threatening, Hospitalization)
  Sender: FDA-Public Use
  Company Number: GB-BRISTOL-MYERS SQUIBB COMPANY-12527768

PATIENT
  Age: 44 Year
  Sex: Male
  Weight: 118 kg

DRUGS (6)
  1. CYCLOPHOSPHAMIDE [Suspect]
     Indication: NON-HODGKIN'S LYMPHOMA
     Route: 042
     Dates: start: 20040210, end: 20040210
  2. NEUPOGEN [Suspect]
     Indication: NON-HODGKIN'S LYMPHOMA
     Dosage: RECEIVED 480 MCG FROM 04-JAN-04
     Route: 058
     Dates: start: 20040215, end: 20040215
  3. DOXORUBICIN [Concomitant]
     Indication: NON-HODGKIN'S LYMPHOMA
     Route: 042
     Dates: start: 20040210, end: 20040210
  4. VINCRISTINE [Concomitant]
     Indication: NON-HODGKIN'S LYMPHOMA
     Route: 042
     Dates: start: 20040210, end: 20040210
  5. PREDNISONE [Concomitant]
     Indication: NON-HODGKIN'S LYMPHOMA
     Route: 048
     Dates: start: 20040210, end: 20040210
  6. RITUXIMAB [Concomitant]
     Route: 042

REACTIONS (1)
  - ACUTE RESPIRATORY DISTRESS SYNDROME [None]
